FAERS Safety Report 7487460-7 (Version None)
Quarter: 2011Q2

REPORT INFORMATION
  Report Type: 
  Country: None (occurrence: None)
  Receive Date: 20110510
  Receipt Date: 20110428
  Transmission Date: 20111010
  Serious: Yes (Hospitalization)
  Sender: FDA-Public Use
  Company Number: 2011091546

PATIENT
  Age: 59 Year
  Sex: Female

DRUGS (7)
  1. OMEPRAZOLE [Concomitant]
  2. CODEINE PHOSPHATE AND ACETAMINOPHEN [Concomitant]
  3. DEXAMETHASONE [Concomitant]
  4. DALTEPARIN SODIUM [Suspect]
     Indication: LUNG NEOPLASM MALIGNANT
     Dosage: 5000 IU DAILY, SUBCUTANEOUS
     Route: 058
     Dates: start: 20110216
  5. METOCLOPRAMIDE [Concomitant]
  6. FOLIC ACID [Concomitant]
  7. MARIJUANA (CANNABIS) [Concomitant]

REACTIONS (4)
  - METASTASES TO CENTRAL NERVOUS SYSTEM [None]
  - AGGRESSION [None]
  - AMNESIA [None]
  - MOOD ALTERED [None]
